FAERS Safety Report 8136585-1 (Version None)
Quarter: 2012Q1

REPORT INFORMATION
  Report Type: 
  Country: None (occurrence: None)
  Receive Date: 20120209
  Receipt Date: 20120130
  Transmission Date: 20120608
  Serious: Yes (Other)
  Sender: FDA-Public Use
  Company Number: 2012SP005636

PATIENT
  Age: 53 Year
  Sex: Male

DRUGS (2)
  1. INTERFERON [Suspect]
     Indication: HEPATITIS C
     Dosage: 180 MCG;
  2. RIBAVIRIN [Suspect]
     Indication: HEPATITIS C
     Dosage: 1200 MG;

REACTIONS (16)
  - IRRITABILITY [None]
  - INSOMNIA [None]
  - SPINAL COLUMN STENOSIS [None]
  - IMPRISONMENT [None]
  - SERUM FERRITIN INCREASED [None]
  - ASPARTATE AMINOTRANSFERASE INCREASED [None]
  - SUSPICIOUSNESS [None]
  - NEPHROLITHIASIS [None]
  - ULTRASOUND LIVER ABNORMAL [None]
  - DELUSIONAL DISORDER, EROTOMANIC TYPE [None]
  - ABNORMAL BEHAVIOUR [None]
  - DISINHIBITION [None]
  - ANGER [None]
  - NERVOUSNESS [None]
  - ALANINE AMINOTRANSFERASE INCREASED [None]
  - ANXIETY [None]
